FAERS Safety Report 7799786-8 (Version None)
Quarter: 2011Q4

REPORT INFORMATION
  Report Type: 
  Country: None (occurrence: None)
  Receive Date: 20111006
  Receipt Date: 20110927
  Transmission Date: 20120403
  Serious: Yes (Other)
  Sender: FDA-Public Use
  Company Number: US-BAYER-2011-092565

PATIENT
  Sex: Female

DRUGS (1)
  1. MIRENA [Suspect]
     Dosage: 20 ?G, CONT
     Dates: start: 20110513

REACTIONS (5)
  - GENITAL HAEMORRHAGE [None]
  - VOMITING [None]
  - ABDOMINAL PAIN LOWER [None]
  - NAUSEA [None]
  - DIARRHOEA [None]
